FAERS Safety Report 6332098-8 (Version None)
Quarter: 2009Q3

REPORT INFORMATION
  Report Type: 
  Country: None (occurrence: None)
  Receive Date: 20090827
  Receipt Date: 20090827
  Transmission Date: 20100115
  Serious: Yes (Hospitalization)
  Sender: FDA-Public Use
  Company Number: None

PATIENT
  Age: 53 Year
  Sex: Male
  Weight: 65.7716 kg

DRUGS (3)
  1. BEVACIZUMAB [Suspect]
     Indication: OESOPHAGEAL CARCINOMA
     Dosage: 575 MG ONCE IV
     Route: 042
     Dates: start: 20090403, end: 20090424
  2. DOCETAXEL [Suspect]
     Dosage: 140 MG ONCE IV
     Route: 042
     Dates: start: 20090403, end: 20090424
  3. OXALIPLATIN [Concomitant]

REACTIONS (13)
  - ABDOMINAL PAIN [None]
  - BLOOD BILIRUBIN INCREASED [None]
  - BLOOD POTASSIUM DECREASED [None]
  - BLOOD SODIUM DECREASED [None]
  - CHEST DISCOMFORT [None]
  - DEPRESSION [None]
  - DIZZINESS [None]
  - HEPATIC LESION [None]
  - MALIGNANT NEOPLASM PROGRESSION [None]
  - NAUSEA [None]
  - OESOPHAGEAL CARCINOMA [None]
  - RASH PRURITIC [None]
  - VOMITING [None]
